FAERS Safety Report 19988462 (Version 1)
Quarter: 2021Q4

REPORT INFORMATION
  Report Type: Report from Study
  Country: US (occurrence: US)
  Receive Date: 20211023
  Receipt Date: 20211023
  Transmission Date: 20220303
  Serious: No
  Sender: FDA-Public Use
  Company Number: US-NOVARTISTESTPH-NVSC2021US242479

PATIENT

DRUGS (2)
  1. ALBUTEROL SULFATE [Suspect]
     Active Substance: ALBUTEROL SULFATE
     Indication: Product used for unknown indication
     Dosage: UNK
     Route: 065
  2. METOPROLOL [Suspect]
     Active Substance: METOPROLOL
     Indication: Product used for unknown indication
     Dosage: UNK
     Route: 065

REACTIONS (9)
  - Drug ineffective [Unknown]
  - Dyspnoea [Unknown]
  - Bladder discomfort [Unknown]
  - Feeling abnormal [Unknown]
  - Weight increased [Unknown]
  - Wheezing [Unknown]
  - Joint swelling [Unknown]
  - Insomnia [Unknown]
  - Cough [Unknown]
